FAERS Safety Report 15984816 (Version 2)
Quarter: 2019Q1

REPORT INFORMATION
  Report Type: Spontaneous
  Country: US (occurrence: US)
  Receive Date: 20190220
  Receipt Date: 20190319
  Transmission Date: 20190418
  Serious: Yes (Other)
  Sender: FDA-Public Use
  Company Number: US-AKORN PHARMACEUTICALS-2019AKN00263

PATIENT
  Age: 31 Year
  Sex: Female

DRUGS (2)
  1. UNSPECIFIED BIRTH CONTROL PILLS [Concomitant]
     Active Substance: UNSPECIFIED INGREDIENT
  2. MYORISAN [Suspect]
     Active Substance: ISOTRETINOIN
     Dosage: 30 MG, 1X/DAY; ^AVERAGE DAILY DOSE^
     Dates: start: 20181205, end: 20190206

REACTIONS (1)
  - Exposure during pregnancy [Not Recovered/Not Resolved]

NARRATIVE: CASE EVENT DATE: 20190124
